FAERS Safety Report 24165349 (Version 4)
Quarter: 2025Q2

REPORT INFORMATION
  Report Type: Spontaneous
  Country: US (occurrence: US)
  Receive Date: 20240802
  Receipt Date: 20250429
  Transmission Date: 20250717
  Serious: No
  Sender: MERCK SHARP & DOHME LLC
  Company Number: None

PATIENT
  Sex: Female

DRUGS (6)
  1. WINREVAIR [Suspect]
     Active Substance: SOTATERCEPT-CSRK
     Indication: Pulmonary arterial hypertension
     Dosage: 0.8 ML EVERY THREE WEEKS
  2. WINREVAIR [Suspect]
     Active Substance: SOTATERCEPT-CSRK
     Route: 065
  3. WINREVAIR [Suspect]
     Active Substance: SOTATERCEPT-CSRK
     Route: 065
     Dates: start: 20240705, end: 20240705
  4. WINREVAIR [Suspect]
     Active Substance: SOTATERCEPT-CSRK
  5. LETAIRIS [Suspect]
     Active Substance: AMBRISENTAN
     Dosage: DOSE DESCRIPTION : 10 MILLIGRAM, QD?DAILY DOSE : 10 MILLIGRAM
     Route: 065
  6. SILDENAFIL [Concomitant]
     Active Substance: SILDENAFIL

REACTIONS (17)
  - Ill-defined disorder [Unknown]
  - Diarrhoea [Unknown]
  - Head discomfort [Unknown]
  - Ocular hyperaemia [Unknown]
  - Sinus congestion [Unknown]
  - Platelet count decreased [Unknown]
  - Brain natriuretic peptide decreased [Unknown]
  - Headache [Unknown]
  - Drug withdrawal syndrome [Unknown]
  - Ill-defined disorder [Unknown]
  - Asthenia [Unknown]
  - Feeling abnormal [Unknown]
  - Depressed mood [Unknown]
  - Incorrect dose administered [Unknown]
  - Product administration interrupted [Unknown]
  - Epistaxis [Recovered/Resolved]
  - Haemoglobin increased [Unknown]

NARRATIVE: CASE EVENT DATE: 20240101
